FAERS Safety Report 6700808-3 (Version None)
Quarter: 2010Q2

REPORT INFORMATION
  Report Type: 
  Country: None (occurrence: None)
  Receive Date: 20100428
  Receipt Date: 20100416
  Transmission Date: 20101027
  Serious: Yes (Hospitalization, Other)
  Sender: FDA-Public Use
  Company Number: US-BAYER-201015098NA

PATIENT
  Age: 34 Year
  Sex: Female
  Weight: 68 kg

DRUGS (1)
  1. MIRENA [Suspect]
     Indication: CONTRACEPTION
     Dosage: FREQUENCY CONTINUOUS-THERE WAS A FAULTY DEVICE AT TIME OF INITIAL INSERTION THAT REQUIRED A 2ND IUD
     Route: 015
     Dates: start: 20090917, end: 20100324

REACTIONS (1)
  - DEVICE DISLOCATION [None]
